FAERS Safety Report 8759253 (Version 2)
Quarter: 2012Q4

REPORT INFORMATION
  Report Type: 
  Country: US (occurrence: US)
  Receive Date: 20120829
  Receipt Date: 20121003
  Transmission Date: 20130627
  Serious: No
  Sender: FDA-Public Use
  Company Number: US-009507513-1208USA010517

PATIENT
  Age: 75 None
  Sex: Female
  Weight: 60.77 kg

DRUGS (5)
  1. MIRALAX [Suspect]
     Indication: DIVERTICULUM
     Dosage: 17 g, qd
     Route: 048
     Dates: start: 201203, end: 20120813
  2. MIRALAX [Suspect]
     Indication: MEDICAL OBSERVATION
  3. OMEGA-3 MARINE TRIGLYCERIDES [Concomitant]
     Indication: PRODUCT USED FOR UNKNOWN INDICATION
     Dosage: UNK, Unknown
  4. VITAMIN D (UNSPECIFIED) [Concomitant]
     Indication: PRODUCT USED FOR UNKNOWN INDICATION
     Dosage: UNK, Unknown
  5. RAMIPRIL [Concomitant]
     Indication: HYPERTENSION
     Dosage: UNK, qd

REACTIONS (5)
  - Pain [Recovered/Resolved]
  - Muscle spasms [Unknown]
  - Flatulence [Recovered/Resolved]
  - Off label use [Unknown]
  - Incorrect drug administration duration [Unknown]
